FAERS Safety Report 7531029-2 (Version None)
Quarter: 2011Q2

REPORT INFORMATION
  Report Type: 
  Country: None (occurrence: None)
  Receive Date: 20110608
  Receipt Date: 20110505
  Transmission Date: 20111010
  Serious: Yes (Hospitalization, Other)
  Sender: FDA-Public Use
  Company Number: US-BAYER-201041487NA

PATIENT
  Age: 39 Year
  Sex: Female
  Weight: 89.796 kg

DRUGS (17)
  1. PREVACID [Concomitant]
  2. ALLEGRA [Concomitant]
  3. CALCIUM CARBONATE [Concomitant]
  4. MAGNESIUM SULFATE [Concomitant]
  5. ZOLOFT [Concomitant]
  6. ZINC [Concomitant]
  7. DROSPIRENONE AND ETHINYL ESTRADIOL [Suspect]
     Indication: ACNE
  8. NORVASC [Concomitant]
  9. GARLIC [Concomitant]
  10. MIRALAX [Concomitant]
  11. CAL-MAG [Concomitant]
  12. YASMIN [Suspect]
     Indication: ACNE
  13. FERROUS SULFATE TAB [Concomitant]
  14. IMITREX [Concomitant]
  15. MULTI-VITAMIN [Concomitant]
  16. PROMETHAZINE [Concomitant]
  17. MIRALAX [Concomitant]

REACTIONS (3)
  - CHOLECYSTITIS CHRONIC [None]
  - GALLBLADDER DISORDER [None]
  - PAIN [None]
